FAERS Safety Report 11894035 (Version 1)
Quarter: 2016Q1

REPORT INFORMATION
  Report Type: Report from Study
  Country: GB (occurrence: GB)
  Receive Date: 20160107
  Receipt Date: 20160107
  Transmission Date: 20160526
  Serious: Yes (Other)
  Sender: FDA-Public Use
  Company Number: GB-AEGERION PHARMACEUTICALS INC-AEGR002322

PATIENT

DRUGS (1)
  1. LOMITAPIDE [Suspect]
     Active Substance: LOMITAPIDE MESYLATE
     Indication: LOW DENSITY LIPOPROTEIN INCREASED
     Dosage: 10 MG, QD
     Route: 048

REACTIONS (1)
  - Hepatic enzyme increased [Recovering/Resolving]
